FAERS Safety Report 9804405 (Version 2)
Quarter: 2014Q1

REPORT INFORMATION
  Report Type: Spontaneous
  Country: US (occurrence: None)
  Receive Date: 20140106
  Receipt Date: 20140127
  Transmission Date: 20141002
  Serious: Yes (Hospitalization, Other)
  Sender: FDA-Public Use
  Company Number: ADR-2013-02372

PATIENT
  Age: 57 Year
  Sex: Female

DRUGS (2)
  1. BACLOFEN [Suspect]
     Indication: MUSCLE SPASTICITY
  2. ORAL BACLOFEN [Suspect]

REACTIONS (9)
  - Hypoaesthesia [None]
  - Muscular weakness [None]
  - Device malfunction [None]
  - Cognitive disorder [None]
  - Cough [None]
  - Muscle spasms [None]
  - Upper respiratory tract infection [None]
  - Drug effect decreased [None]
  - Drug withdrawal syndrome [None]
